FAERS Safety Report 7674304-3 (Version None)
Quarter: 2011Q3

REPORT INFORMATION
  Report Type: 
  Country: None (occurrence: None)
  Receive Date: 20110810
  Receipt Date: 20110202
  Transmission Date: 20111222
  Serious: No
  Sender: FDA-Public Use
  Company Number: US-BAUSCH-2011BL000702

PATIENT
  Age: 84 Year
  Sex: Female

DRUGS (4)
  1. CROMOLYN SODIUM [Suspect]
     Indication: MULTIPLE ALLERGIES
     Route: 045
     Dates: start: 20110106
  2. XYZAL [Suspect]
     Indication: MULTIPLE ALLERGIES
     Route: 048
     Dates: end: 20110101
  3. ALBUTEROL SULFATE AUTOHALER [Concomitant]
     Indication: ASTHMA
     Route: 049
     Dates: start: 20080101
  4. NORVASC [Concomitant]
     Indication: HYPERTENSION

REACTIONS (5)
  - DYSPNOEA [None]
  - PRURITUS [None]
  - FEELING ABNORMAL [None]
  - BLOOD PRESSURE INCREASED [None]
  - DRUG INTERACTION [None]
